FAERS Safety Report 5918971-0 (Version None)
Quarter: 2008Q4

REPORT INFORMATION
  Report Type: 
  Country: None (occurrence: None)
  Receive Date: 20081010
  Receipt Date: 20080926
  Transmission Date: 20090506
  Serious: Yes (Hospitalization, Other)
  Sender: FDA-Public Use
  Company Number: 310001L08TUR

PATIENT
  Age: 32 Year
  Sex: Female
  Weight: 45 kg

DRUGS (6)
  1. GONAL-F [Suspect]
     Indication: ASSISTED FERTILISATION
     Dosage: 150 IU, 112.5 IU, 50 IU
  2. GONAL-F [Suspect]
     Indication: ASSISTED FERTILISATION
     Dosage: 150 IU, 112.5 IU, 50 IU
  3. GONAL-F [Suspect]
     Indication: ASSISTED FERTILISATION
     Dosage: 150 IU, 112.5 IU, 50 IU
  4. CHORIONIC GONADTROPIN [Suspect]
     Dosage: 10000 IU, ONCE
  5. LEUPROLIDE ACETATE [Concomitant]
  6. CRINONE (PROGESTERONE GEL) (PROGESTERONE) [Concomitant]

REACTIONS (11)
  - ABDOMINAL DISCOMFORT [None]
  - ABORTION MISSED [None]
  - ASCITES [None]
  - FACTOR V LEIDEN MUTATION [None]
  - JUGULAR VEIN THROMBOSIS [None]
  - NAUSEA [None]
  - NECK PAIN [None]
  - OEDEMA PERIPHERAL [None]
  - OVARIAN HYPERSTIMULATION SYNDROME [None]
  - SUBCLAVIAN VEIN THROMBOSIS [None]
  - VOMITING [None]
